FAERS Safety Report 8048306-1 (Version None)
Quarter: 2012Q1

REPORT INFORMATION
  Report Type: 
  Country: None (occurrence: None)
  Receive Date: 20120117
  Receipt Date: 20120111
  Transmission Date: 20120608
  Serious: Yes (Other)
  Sender: FDA-Public Use
  Company Number: US-PFIZER INC-2012008823

PATIENT
  Sex: Female
  Weight: 79.365 kg

DRUGS (8)
  1. FOSAMAX [Concomitant]
     Dosage: 70 MG, WEEKLY
  2. MAVIK [Concomitant]
     Dosage: 4 MG, DAILY
  3. REVATIO [Suspect]
     Indication: PULMONARY HYPERTENSION
     Dosage: UNK
     Route: 048
     Dates: start: 20090101
  4. KAPIDEX [Concomitant]
     Dosage: 60 MG, DAILY
  5. REVATIO [Suspect]
     Dosage: 20 MG, 3X/DAY
     Route: 048
     Dates: start: 20090101
  6. ASTELIN [Concomitant]
     Dosage: UNK, 2X/DAY
  7. MYCOPHENOLATE MOFETIL (CELLCEPT) [Concomitant]
     Dosage: 1000 MG, DAILY
  8. DEXILANT [Concomitant]
     Dosage: UNK

REACTIONS (1)
  - OEDEMA [None]
